FAERS Safety Report 5170517-3 (Version None)
Quarter: 2006Q4

REPORT INFORMATION
  Report Type: 
  Country: None (occurrence: None)
  Receive Date: 20061212
  Receipt Date: 20061103
  Transmission Date: 20070319
  Serious: Yes (Death, Life-Threatening, Hospitalization, Disabling, Other)
  Sender: FDA-Public Use
  Company Number: FR-ABBOTT-06P-056-0349358-00

PATIENT
  Age: 41 Year
  Sex: Male

DRUGS (12)
  1. NORVIR [Suspect]
     Indication: HIV INFECTION
     Route: 048
     Dates: start: 20060315, end: 20060913
  2. NORVIR [Suspect]
     Route: 048
     Dates: start: 20060914, end: 20061022
  3. APTIVUS [Suspect]
     Indication: HIV INFECTION
     Route: 048
     Dates: start: 20060315, end: 20060913
  4. APTIVUS [Suspect]
     Route: 048
     Dates: start: 20060914, end: 20061022
  5. ENOXAPARIN SODIUM [Suspect]
     Indication: DRUG USE FOR UNKNOWN INDICATION
     Route: 058
     Dates: start: 20061019, end: 20061020
  6. ANTICOAGULANTS [Concomitant]
     Indication: PULMONARY EMBOLISM
  7. AMPHOTERICIN B [Concomitant]
     Indication: DRUG USE FOR UNKNOWN INDICATION
     Route: 048
  8. METHYLPREDNISOLONE [Concomitant]
     Indication: DRUG USE FOR UNKNOWN INDICATION
     Route: 048
     Dates: start: 20060815
  9. CYCLOSPORINE [Concomitant]
     Indication: DRUG USE FOR UNKNOWN INDICATION
     Route: 048
     Dates: start: 20060813
  10. VIREAD [Concomitant]
     Indication: HIV INFECTION
     Route: 048
     Dates: start: 20060301
  11. FUZEON [Concomitant]
     Indication: HIV INFECTION
     Route: 042
     Dates: start: 20060301
  12. PROPRANOLOL [Concomitant]
     Indication: DRUG USE FOR UNKNOWN INDICATION

REACTIONS (22)
  - ABDOMINAL HAEMATOMA [None]
  - ASPERGILLOSIS [None]
  - CARDIAC FAILURE [None]
  - CHOLESTASIS [None]
  - CYTOLYTIC HEPATITIS [None]
  - CYTOMEGALOVIRUS INFECTION [None]
  - EPILEPSY [None]
  - GASTRITIS [None]
  - HAEMORRHAGE INTRACRANIAL [None]
  - HEPATIC CIRRHOSIS [None]
  - HEPATOCELLULAR DAMAGE [None]
  - HYPERTENSION [None]
  - INTRACRANIAL HAEMATOMA [None]
  - JAUNDICE [None]
  - LACTIC ACIDOSIS [None]
  - LIVER TRANSPLANT [None]
  - PORTAL HYPERTENSION [None]
  - PULMONARY EMBOLISM [None]
  - PULMONARY OEDEMA [None]
  - RENAL FAILURE ACUTE [None]
  - RESPIRATORY TRACT INFECTION BACTERIAL [None]
  - VARICES OESOPHAGEAL [None]
